FAERS Safety Report 7548517-5 (Version None)
Quarter: 2011Q2

REPORT INFORMATION
  Report Type: 
  Country: None (occurrence: None)
  Receive Date: 20110524
  Receipt Date: 20110125
  Transmission Date: 20111010
  Serious: No
  Sender: FDA-Public Use
  Company Number: 026249

PATIENT
  Sex: Male
  Weight: 51.4 kg

DRUGS (2)
  1. ATROPINE W/DIPHENOXYLATE /00034001/ [Concomitant]
  2. CIMZIA [Suspect]
     Indication: CROHN'S DISEASE
     Dosage: (400 MG 1X/MONTH SUBCUTANEOUS)
     Route: 058
     Dates: start: 20100101

REACTIONS (2)
  - URTICARIA [None]
  - SWELLING [None]
